FAERS Safety Report 9934320 (Version 1)
Quarter: 2014Q1

REPORT INFORMATION
  Report Type: Spontaneous
  Country: US (occurrence: US)
  Receive Date: 20140228
  Receipt Date: 20140228
  Transmission Date: 20141002
  Serious: Yes (Other)
  Sender: FDA-Public Use
  Company Number: US-ASTRAZENECA-2014SE13296

PATIENT
  Age: 66 Year
  Sex: Male

DRUGS (8)
  1. LIDOCAINE [Suspect]
     Indication: LOCAL ANAESTHESIA
     Route: 058
  2. LIDOCAINE [Suspect]
     Indication: LUMBAR SPINAL STENOSIS
     Route: 058
  3. LIDOCAINE [Suspect]
     Indication: RADICULOPATHY
     Route: 058
  4. LIDOCAINE [Suspect]
     Indication: LOCAL ANAESTHESIA
     Route: 008
  5. LIDOCAINE [Suspect]
     Indication: LUMBAR SPINAL STENOSIS
     Route: 008
  6. LIDOCAINE [Suspect]
     Indication: RADICULOPATHY
     Route: 008
  7. BETAMETHASONE [Concomitant]
     Indication: LUMBAR SPINAL STENOSIS
     Route: 008
  8. BETAMETHASONE [Concomitant]
     Indication: RADICULOPATHY
     Route: 008

REACTIONS (1)
  - Skin necrosis [Recovered/Resolved]
